FAERS Safety Report 4291884-9 (Version None)
Quarter: 2004Q1

REPORT INFORMATION
  Report Type: 
  Country: None (occurrence: None)
  Receive Date: 20040211
  Receipt Date: 20030825
  Transmission Date: 20041129
  Serious: No
  Sender: FDA-Public Use
  Company Number: US-GLAXOSMITHKLINE-A0423417A

PATIENT
  Sex: Female

DRUGS (6)
  1. IMITREX [Suspect]
     Indication: MIGRAINE
     Dosage: 6MG AS REQUIRED
     Route: 058
  2. IMITREX [Suspect]
     Dosage: 50MG AS REQUIRED
     Route: 048
  3. VICODIN [Concomitant]
  4. DEPAKOTE [Concomitant]
  5. LEVOXYL [Concomitant]
  6. BIRTH CONTROL PILLS [Concomitant]

REACTIONS (1)
  - HEADACHE [None]
